FAERS Safety Report 5318705-7 (Version None)
Quarter: 2007Q2

REPORT INFORMATION
  Report Type: 
  Country: None (occurrence: None)
  Receive Date: 20070508
  Receipt Date: 20070426
  Transmission Date: 20071010
  Serious: Yes (Other)
  Sender: FDA-Public Use
  Company Number: HQWYE875526APR07

PATIENT
  Age: 21 Year
  Sex: Female

DRUGS (1)
  1. CORDARONE [Suspect]
     Indication: ATRIAL FLUTTER
     Dosage: 120 MG INFUSED OVER 2 MINUTES
     Route: 042
     Dates: start: 20041231, end: 20041231

REACTIONS (6)
  - BRADYCARDIA [None]
  - CYANOSIS [None]
  - DIZZINESS [None]
  - DYSPNOEA [None]
  - HYPOTENSION [None]
  - PALLOR [None]
